FAERS Safety Report 8348691-7 (Version None)
Quarter: 2012Q2

REPORT INFORMATION
  Report Type: 
  Country: None (occurrence: None)
  Receive Date: 20120510
  Receipt Date: 20120427
  Transmission Date: 20120825
  Serious: Yes (Hospitalization, Other)
  Sender: FDA-Public Use
  Company Number: US-ELI_LILLY_AND_COMPANY-US201111003317

PATIENT
  Sex: Female

DRUGS (22)
  1. LANTUS [Concomitant]
  2. PRILOSEC [Concomitant]
  3. MIRALAX [Concomitant]
  4. ZOCOR [Concomitant]
  5. FORTEO [Suspect]
     Indication: OSTEOPOROSIS
     Dosage: 20 UG, QD
     Route: 065
     Dates: start: 20110801
  6. FORTEO [Suspect]
     Dosage: 20 UG, QD
     Route: 065
  7. FORTEO [Suspect]
     Dosage: 20 UG, QD
     Route: 065
  8. PREDNISONE [Concomitant]
  9. VITAMIN C [Concomitant]
  10. ASPIRIN [Concomitant]
  11. OXYCONTIN [Concomitant]
     Indication: PAIN
     Dosage: UNK, PRN
  12. HYZAAR [Concomitant]
  13. ANALGESICS [Concomitant]
     Indication: PAIN
  14. PERCOCET [Concomitant]
     Indication: PAIN
     Dosage: UNK, PRN
  15. FORTEO [Suspect]
     Dosage: 20 UG, QD
  16. MORPHINE [Concomitant]
  17. JANUVIA [Concomitant]
  18. CALCIUM [Concomitant]
  19. MULTI-VITAMIN [Concomitant]
  20. FORTEO [Suspect]
     Dosage: 20 UG, QD
     Route: 065
  21. FORTEO [Suspect]
     Dosage: 20 UG, QD
     Route: 065
  22. IRON [Concomitant]

REACTIONS (15)
  - FEELING ABNORMAL [None]
  - BREAST PAIN [None]
  - HEPATIC ENZYME ABNORMAL [None]
  - LABORATORY TEST ABNORMAL [None]
  - CONSTIPATION [None]
  - SKIN DISORDER [None]
  - NAUSEA [None]
  - RASH [None]
  - PAIN [None]
  - OVERDOSE [None]
  - BACK DISORDER [None]
  - BLOOD CALCIUM INCREASED [None]
  - PNEUMONIA [None]
  - DIZZINESS [None]
  - VOMITING [None]
